FAERS Safety Report 8616047-5 (Version None)
Quarter: 2012Q3

REPORT INFORMATION
  Report Type: 
  Country: None (occurrence: None)
  Receive Date: 20120823
  Receipt Date: 20120816
  Transmission Date: 20120928
  Serious: Yes (Hospitalization)
  Sender: FDA-Public Use
  Company Number: SE-B.I. PHARMACEUTICALS,INC./RIDGEFIELD-2012-SW-00622SW

PATIENT
  Sex: Female

DRUGS (4)
  1. PRADAXA [Suspect]
     Indication: ATRIAL FIBRILLATION
     Dosage: 300 MG
     Dates: start: 20120123
  2. NORVASC [Concomitant]
     Dosage: 5 MG
  3. DIKLOFENAC [Concomitant]
     Dosage: 100 MG
  4. CENTYL K MITE [Concomitant]
     Dosage: DAILY DOSE: 1X1

REACTIONS (1)
  - TRANSIENT ISCHAEMIC ATTACK [None]
